FAERS Safety Report 7430349-X (Version None)
Quarter: 2011Q2

REPORT INFORMATION
  Report Type: 
  Country: None (occurrence: None)
  Receive Date: 20110421
  Receipt Date: 20100407
  Transmission Date: 20111010
  Serious: No
  Sender: FDA-Public Use
  Company Number: US-ASTRAZENECA-2010SE15277

PATIENT
  Age: 68 Year
  Sex: Female
  Weight: 79.4 kg

DRUGS (2)
  1. TOPROL-XL [Suspect]
     Indication: HYPERTENSION
     Route: 048
  2. COZAAR [Concomitant]

REACTIONS (6)
  - POLLAKIURIA [None]
  - MUSCULOSKELETAL DISCOMFORT [None]
  - WEIGHT DECREASED [None]
  - PAIN [None]
  - SLEEP DISORDER [None]
  - MYALGIA [None]
